FAERS Safety Report 18203633 (Version 1)
Quarter: 2020Q3

REPORT INFORMATION
  Report Type: Other
  Country: IT (occurrence: IT)
  Receive Date: 20200827
  Receipt Date: 20200827
  Transmission Date: 20201103
  Serious: Yes (Life-Threatening, Hospitalization)
  Sender: FDA-Public Use
  Company Number: IT-NOSTRUM LABORATORIES, INC.-2089098

PATIENT
  Age: 18 Month
  Sex: Female

DRUGS (3)
  1. PEG?3350, SODIUM CHLORIDE, SODIUM BICARBONATE AND POTASSIUM CHLORIDE ( [Suspect]
     Active Substance: POLYETHYLENE GLYCOL 3350\POTASSIUM CHLORIDE\SODIUM BICARBONATE\SODIUM CHLORIDE
     Indication: CONSTIPATION
     Route: 048
  2. FLUOROCORTISONE (FLUOROCORTISONE) [Interacting]
     Active Substance: FLUDROCORTISONE
     Route: 048
  3. HYDROCORTISONE ACETATE. [Interacting]
     Active Substance: HYDROCORTISONE ACETATE
     Route: 048

REACTIONS (4)
  - Drug interaction [Recovered/Resolved]
  - Hypoglycaemia [Recovered/Resolved]
  - Adrenal insufficiency [Recovered/Resolved]
  - Hypotension [Recovered/Resolved]
